FAERS Safety Report 12450691 (Version 1)
Quarter: 2016Q2

REPORT INFORMATION
  Report Type: Spontaneous
  Country: US (occurrence: None)
  Receive Date: 20160608
  Receipt Date: 20160608
  Transmission Date: 20160815
  Serious: Yes (Other)
  Sender: FDA-Public Use
  Company Number: None

PATIENT
  Age: 43 Year
  Sex: Female
  Weight: 90.72 kg

DRUGS (8)
  1. NORTRIPTYLINE, 10 MG ACTAVIS [Suspect]
     Active Substance: NORTRIPTYLINE
     Indication: RADICULAR SYNDROME
     Route: 048
     Dates: start: 20160115, end: 20160527
  2. ALBUTEROL. [Concomitant]
     Active Substance: ALBUTEROL
  3. ZANTAC [Concomitant]
     Active Substance: RANITIDINE HYDROCHLORIDE
  4. TYLENOL [Concomitant]
     Active Substance: ACETAMINOPHEN
  5. CALCIUM WITH VITAMIN D [Concomitant]
     Active Substance: CALCIUM\VITAMIN D
  6. IBUPROFEN. [Concomitant]
     Active Substance: IBUPROFEN
  7. DULERA [Concomitant]
     Active Substance: FORMOTEROL FUMARATE DIHYDRATE\MOMETASONE FUROATE
  8. ZYRTEC [Concomitant]
     Active Substance: CETIRIZINE HYDROCHLORIDE

REACTIONS (12)
  - Pain [None]
  - Depressed level of consciousness [None]
  - Photophobia [None]
  - Depression [None]
  - Myalgia [None]
  - Visual impairment [None]
  - Palpitations [None]
  - Balance disorder [None]
  - Fatigue [None]
  - Lethargy [None]
  - Asthenia [None]
  - Sedation [None]
